FAERS Safety Report 6264118-3 (Version None)
Quarter: 2009Q3

REPORT INFORMATION
  Report Type: 
  Country: None (occurrence: None)
  Receive Date: 20090706
  Receipt Date: 20090226
  Transmission Date: 20100115
  Serious: Yes (Other)
  Sender: FDA-Public Use
  Company Number: 617796

PATIENT
  Age: 7 Year
  Sex: Male

DRUGS (1)
  1. CELLCEPT [Suspect]
     Indication: DERMATITIS ATOPIC

REACTIONS (1)
  - MYOSITIS [None]
